FAERS Safety Report 25504812 (Version 3)
Quarter: 2025Q3

REPORT INFORMATION
  Report Type: Report from Study
  Country: US (occurrence: US)
  Receive Date: 20250702
  Receipt Date: 20250908
  Transmission Date: 20251021
  Serious: Yes (Hospitalization, Other)
  Sender: NOVARTIS
  Company Number: US-002147023-NVSC2025US041346

PATIENT
  Age: 52 Year
  Sex: Male

DRUGS (1)
  1. KESIMPTA [Suspect]
     Active Substance: OFATUMUMAB
     Indication: Relapsing multiple sclerosis
     Dosage: 20 MG, QMO
     Route: 058
     Dates: start: 20241216

REACTIONS (11)
  - Urinary tract infection [Not Recovered/Not Resolved]
  - Blood urine present [Unknown]
  - Sepsis [Unknown]
  - Haemoglobin decreased [Unknown]
  - Multiple sclerosis relapse [Unknown]
  - Multiple sclerosis [Recovering/Resolving]
  - Muscle spasms [Recovering/Resolving]
  - Polyuria [Recovering/Resolving]
  - Influenza [Unknown]
  - Pyrexia [Unknown]
  - Product distribution issue [Unknown]

NARRATIVE: CASE EVENT DATE: 20250527
